FAERS Safety Report 8259507-1 (Version None)
Quarter: 2012Q1

REPORT INFORMATION
  Report Type: 
  Country: None (occurrence: None)
  Receive Date: 20120327
  Receipt Date: 20080814
  Transmission Date: 20120608
  Serious: Yes (Other)
  Sender: FDA-Public Use
  Company Number: PHEH2008US07187

PATIENT
  Sex: Male

DRUGS (1)
  1. IMATINIB MESYLATE (GLEEVEC) [Suspect]
     Dates: start: 20070101

REACTIONS (2)
  - ANAEMIA [None]
  - OEDEMA PERIPHERAL [None]
